FAERS Safety Report 7087990-6 (Version None)
Quarter: 2010Q4

REPORT INFORMATION
  Report Type: 
  Country: None (occurrence: None)
  Receive Date: 20101108
  Receipt Date: 20101102
  Transmission Date: 20110411
  Serious: Yes (Other)
  Sender: FDA-Public Use
  Company Number: FR-BRISTOL-MYERS SQUIBB COMPANY-15365950

PATIENT
  Age: 59 Year
  Sex: Female

DRUGS (2)
  1. COAPROVEL FILM-COATED TABS [Suspect]
  2. RED VINE EXTRACT [Concomitant]

REACTIONS (1)
  - HEPATITIS A [None]
